FAERS Safety Report 7258303-1 (Version None)
Quarter: 2011Q1

REPORT INFORMATION
  Report Type: 
  Country: None (occurrence: None)
  Receive Date: 20110129
  Receipt Date: 20100727
  Transmission Date: 20110831
  Serious: No
  Sender: FDA-Public Use
  Company Number: US-ABBOTT-10P-163-0660429-00

PATIENT
  Age: 22 Year
  Sex: Female

DRUGS (8)
  1. HUMIRA [Suspect]
  2. FOLIC ACID [Concomitant]
     Indication: CROHN'S DISEASE
  3. ZOLOFT [Concomitant]
     Indication: DEPRESSION
  4. MULTI-VITAMIN [Concomitant]
     Indication: PRODUCT USED FOR UNKNOWN INDICATION
  5. LEVSIN [Concomitant]
     Indication: PAIN
  6. KLONOPIN [Concomitant]
     Indication: ANXIETY
  7. IRON [Concomitant]
     Indication: PRODUCT USED FOR UNKNOWN INDICATION
  8. HUMIRA [Suspect]
     Indication: CROHN'S DISEASE
     Dates: start: 20100727, end: 20100727

REACTIONS (1)
  - HEADACHE [None]
